FAERS Safety Report 10409383 (Version 2)
Quarter: 2014Q4

REPORT INFORMATION
  Report Type: Spontaneous
  Country: US (occurrence: None)
  Receive Date: 20140604
  Receipt Date: 20141010
  Transmission Date: 20150528
  Serious: Yes (Other)
  Sender: FDA-Public Use
  Company Number: 163-POMAL-14032728

PATIENT
  Age: 63 Year
  Sex: Female
  Weight: 50.98 kg

DRUGS (26)
  1. AZELASTINE [Concomitant]
     Active Substance: AZELASTINE
  2. ACYCLOVIR (ACICLOVIR) (ACICLOVIR) [Concomitant]
     Active Substance: ACYCLOVIR
  3. ASPIRIN (ACETYLSALICYLIC ACID) (ENTERIC-COATED TABLET) [Concomitant]
  4. HYDROCODONE/ACETAMINOPHEN (REMEDEINE) [Concomitant]
  5. FISH OIL [Concomitant]
     Active Substance: FISH OIL
  6. DILAUDID [Concomitant]
     Active Substance: HYDROMORPHONE HYDROCHLORIDE
  7. OXYCONTIN [Concomitant]
     Active Substance: OXYCODONE HYDROCHLORIDE
  8. MIRALAX (MACROGOL) [Concomitant]
  9. DECADRON [Concomitant]
     Active Substance: DEXAMETHASONE
  10. BIAXIN [Concomitant]
     Active Substance: CLARITHROMYCIN
  11. AUGMENTIN (CLAVULIN) [Concomitant]
  12. DEXAMETHASONE. [Concomitant]
     Active Substance: DEXAMETHASONE
  13. FLEXERIL [Concomitant]
     Active Substance: CYCLOBENZAPRINE HYDROCHLORIDE
  14. CALCIUM PLUS VITAMIN D (CALCIUM D3 ^STADA^) [Concomitant]
  15. VITAMIN D (ERGOCALCIFEROL) [Concomitant]
     Active Substance: ERGOCALCIFEROL
  16. SENNA [Concomitant]
     Active Substance: SENNA LEAF\SENNOSIDES\SENNOSIDES A AND B
  17. BACTRIM (BACTRIM) [Concomitant]
  18. COLACE [Concomitant]
     Active Substance: DOCUSATE SODIUM
  19. TRAZODONE [Concomitant]
     Active Substance: TRAZODONE HYDROCHLORIDE
  20. POMALYST [Suspect]
     Active Substance: POMALIDOMIDE
     Indication: PLASMA CELL MYELOMA
     Dosage: 4 MG, 21 IN 21 D, PO
     Route: 048
     Dates: start: 20130521
  21. ZOMETA [Concomitant]
     Active Substance: ZOLEDRONIC ACID
  22. RESTASIS (CICLOSPORIN) [Concomitant]
  23. MINOCIN (MINOCYCLINE) [Concomitant]
  24. LEXAPRO [Concomitant]
     Active Substance: ESCITALOPRAM OXALATE
  25. VITAMIN D2 (ERGOCALCIFEROL)(CAPSULES) [Concomitant]
  26. ZYRTEC [Concomitant]
     Active Substance: CETIRIZINE HYDROCHLORIDE

REACTIONS (2)
  - Platelet count decreased [None]
  - Neutrophil count decreased [None]

NARRATIVE: CASE EVENT DATE: 20140102
